FAERS Safety Report 12302846 (Version 1)
Quarter: 2016Q2

REPORT INFORMATION
  Report Type: Report from Study
  Country: US (occurrence: US)
  Receive Date: 20160426
  Receipt Date: 20160426
  Transmission Date: 20160815
  Serious: Yes (Other)
  Sender: FDA-Public Use
  Company Number: US-AMGEN-USASL2016050360

PATIENT
  Age: 67 Year
  Sex: Male

DRUGS (2)
  1. ENBREL [Suspect]
     Active Substance: ETANERCEPT
     Indication: PRODUCT USED FOR UNKNOWN INDICATION
     Dosage: UNK UNK, UNK
     Route: 065
  2. TYLENOL WITH CODEINE [Suspect]
     Active Substance: ACETAMINOPHEN\CODEINE PHOSPHATE
     Indication: ARTHRALGIA
     Dosage: UNK
     Route: 065

REACTIONS (5)
  - Oesophageal operation [Unknown]
  - Pancreatitis acute [Unknown]
  - Arthralgia [Unknown]
  - Chest X-ray abnormal [Unknown]
  - Ulcer [Unknown]

NARRATIVE: CASE EVENT DATE: 201512
